FAERS Safety Report 6416557-5 (Version None)
Quarter: 2009Q4

REPORT INFORMATION
  Report Type: 
  Country: None (occurrence: None)
  Receive Date: 20091027
  Receipt Date: 20091022
  Transmission Date: 20100525
  Serious: Yes (Death, Hospitalization, Other)
  Sender: FDA-Public Use
  Company Number: PHHY2009BR45757

PATIENT
  Sex: Male

DRUGS (8)
  1. FORASEQ [Suspect]
     Indication: RESPIRATORY DISORDER
     Dosage: TWICE A DAY (IN THE MORNING AND AT NIGHT)
  2. LASIX [Concomitant]
     Indication: HYPERTENSION
     Dosage: IN THE MORNING
     Route: 048
  3. ALDACTONE [Concomitant]
     Dosage: IN THE MORNING
  4. ENALAPRIL [Concomitant]
     Dosage: IN THE MORNING;
  5. CARVEDILOL [Concomitant]
     Indication: CARDIAC DISORDER
     Dosage: 25 MG IN THE MORNING
  6. ATROVENT [Concomitant]
     Dosage: NEBULIZATION IN THE MORNING
  7. DIGOXIN [Concomitant]
     Dosage: HALF A TABLET, AFTER THE LUNCH
  8. MAREVAN [Concomitant]
     Dosage: 1/4 OF TABLET AT 20:00PM.

REACTIONS (5)
  - CARDIAC ARREST [None]
  - CARDIOMYOPATHY [None]
  - RENAL DISORDER [None]
  - RENAL FAILURE [None]
  - URINARY TRACT INFECTION [None]
